FAERS Safety Report 8434918-X (Version None)
Quarter: 2012Q2

REPORT INFORMATION
  Report Type: 
  Country: None (occurrence: None)
  Receive Date: 20120614
  Receipt Date: 20120608
  Transmission Date: 20120825
  Serious: No
  Sender: FDA-Public Use
  Company Number: US-PFIZER INC-2012138666

PATIENT
  Sex: Male

DRUGS (2)
  1. TOVIAZ [Suspect]
     Indication: MICTURITION DISORDER
     Dosage: 4 MG, DAILY
     Route: 048
     Dates: start: 20120601, end: 20120608
  2. HYDROCHLOROTHIAZIDE [Concomitant]
     Indication: BLOOD PRESSURE ABNORMAL
     Dosage: 2.2 MG, DAILY

REACTIONS (1)
  - POLLAKIURIA [None]
